FAERS Safety Report 11982039 (Version 1)
Quarter: 2016Q1

REPORT INFORMATION
  Report Type: Spontaneous
  Country: US (occurrence: None)
  Receive Date: 20160129
  Receipt Date: 20160129
  Transmission Date: 20160526
  Serious: Yes (Other)
  Sender: FDA-Public Use
  Company Number: None

PATIENT
  Age: 36 Year
  Sex: Female

DRUGS (1)
  1. COPAXONE [Suspect]
     Active Substance: GLATIRAMER ACETATE
     Indication: PRODUCT USED FOR UNKNOWN INDICATION
     Dosage: DOSE FORM: INJECTABLE
     Route: 058
     Dates: start: 20140415

REACTIONS (6)
  - Swelling [None]
  - Diarrhoea [None]
  - Immediate post-injection reaction [None]
  - Vomiting [None]
  - Pallor [None]
  - Dyspnoea [None]

NARRATIVE: CASE EVENT DATE: 20160127
